FAERS Safety Report 5286635-5 (Version None)
Quarter: 2007Q2

REPORT INFORMATION
  Report Type: 
  Country: None (occurrence: None)
  Receive Date: 20070404
  Receipt Date: 20070330
  Transmission Date: 20071010
  Serious: Yes (Other)
  Sender: FDA-Public Use
  Company Number: JP-JPN-A200701446

PATIENT
  Age: 29 Year
  Sex: Female

DRUGS (3)
  1. PAXIL [Suspect]
     Indication: DEPRESSIVE SYMPTOM
     Route: 048
     Dates: start: 20070308, end: 20070315
  2. CONSTAN [Concomitant]
     Route: 048
  3. RESLIN [Concomitant]
     Route: 048

REACTIONS (1)
  - COLITIS ULCERATIVE [None]
